FAERS Safety Report 20336539 (Version 1)
Quarter: 2022Q1

REPORT INFORMATION
  Report Type: Report from Study
  Country: US (occurrence: US)
  Receive Date: 20220114
  Receipt Date: 20220114
  Transmission Date: 20220423
  Serious: Yes (Life-Threatening, Hospitalization)
  Sender: FDA-Public Use
  Company Number: US-GLAXOSMITHKLINE-US2021GSK186702

PATIENT
  Age: 54 Year
  Sex: Female
  Weight: 74.83 kg

DRUGS (15)
  1. ENCEQUIDAR MESYLATE MONOHYDRATE [Suspect]
     Active Substance: ENCEQUIDAR MESYLATE MONOHYDRATE
     Indication: Breast cancer
     Dosage: 390 MG, Z QDX3DAY
     Route: 048
     Dates: start: 20210527, end: 20210722
  2. PACLITAXEL [Suspect]
     Active Substance: PACLITAXEL
     Dosage: 15 MG, Z QDX3DAY
     Route: 048
     Dates: start: 20210527, end: 20210722
  3. DOSTARLIMAB [Suspect]
     Active Substance: DOSTARLIMAB
     Indication: Breast cancer
     Dosage: 500 MG, Z-C1,4, 7, 10
     Route: 042
     Dates: start: 20210527, end: 20210527
  4. DOSTARLIMAB [Suspect]
     Active Substance: DOSTARLIMAB
     Dosage: 500 MG, Z-C1,4, 7, 10
     Route: 042
     Dates: start: 20210722, end: 20210722
  5. CARBOPLATIN [Suspect]
     Active Substance: CARBOPLATIN
     Indication: Breast cancer
     Dosage: 1.5 AUC, WE
     Route: 042
     Dates: start: 20210527, end: 20210527
  6. CARBOPLATIN [Suspect]
     Active Substance: CARBOPLATIN
     Dosage: 1.5 AUC, WE
     Route: 042
     Dates: start: 20210722, end: 20210722
  7. CYCLOPHOSPHAMIDE [Suspect]
     Active Substance: CYCLOPHOSPHAMIDE
     Indication: Breast cancer
     Dosage: 1000 MG/M2
     Route: 042
     Dates: start: 20210826, end: 20210826
  8. CYCLOPHOSPHAMIDE [Suspect]
     Active Substance: CYCLOPHOSPHAMIDE
     Dosage: 1000 MG/M2
     Route: 042
     Dates: start: 20210930, end: 20210930
  9. DOXORUBICIN [Suspect]
     Active Substance: DOXORUBICIN
     Indication: Breast cancer
     Dosage: 110 MG, Z Q3WEEKS
     Route: 042
     Dates: start: 20210826, end: 20210826
  10. DOXORUBICIN [Suspect]
     Active Substance: DOXORUBICIN
     Dosage: 110 MG, Z Q3WEEKS
     Route: 042
     Dates: start: 20210930, end: 20210930
  11. SENNA S [Concomitant]
     Active Substance: DOCUSATE SODIUM\SENNA LEAF
     Indication: Constipation
     Dosage: 8.5-50 MG, PRN
     Route: 048
     Dates: start: 20210617
  12. TRAZODONE [Concomitant]
     Active Substance: TRAZODONE HYDROCHLORIDE
     Indication: Insomnia
     Dosage: 50 MG, PRN
     Route: 048
     Dates: start: 20210415
  13. VITAMIN D3 [Concomitant]
     Active Substance: CHOLECALCIFEROL
     Indication: Supplementation therapy
     Dosage: 1000 DF, QD
     Route: 048
     Dates: start: 20000101
  14. LEVOTHYROXINE [Concomitant]
     Active Substance: LEVOTHYROXINE
     Indication: Hypothyroidism
     Dosage: 75 UG, QD
     Route: 048
     Dates: start: 200507
  15. ADRIAMYCIN [Concomitant]
     Active Substance: DOXORUBICIN HYDROCHLORIDE
     Indication: Breast cancer
     Dosage: 60 MG/M2
     Route: 042
     Dates: start: 20210826

REACTIONS (1)
  - Pulmonary embolism [Recovered/Resolved]

NARRATIVE: CASE EVENT DATE: 20210830
